FAERS Safety Report 23559882 (Version 1)
Quarter: 2024Q1

REPORT INFORMATION
  Report Type: Spontaneous
  Country: FR (occurrence: FR)
  Receive Date: 20240223
  Receipt Date: 20240223
  Transmission Date: 20240410
  Serious: Yes (Hospitalization)
  Sender: FDA-Public Use
  Company Number: None

PATIENT
  Age: 77 Year
  Sex: Female
  Weight: 49 kg

DRUGS (2)
  1. ENTRESTO [Suspect]
     Active Substance: SACUBITRIL\VALSARTAN
     Indication: Stress cardiomyopathy
     Dosage: 2 DOSAGE FORM, QD
     Route: 048
     Dates: start: 202308, end: 20231026
  2. TAHOR [Suspect]
     Active Substance: ATORVASTATIN CALCIUM
     Indication: Dyslipidaemia
     Dosage: 40 MG, QD
     Route: 048
     Dates: start: 20230830, end: 20231026

REACTIONS (1)
  - Cholestasis [Recovering/Resolving]

NARRATIVE: CASE EVENT DATE: 20231020
